FAERS Safety Report 6066783-2 (Version None)
Quarter: 2009Q1

REPORT INFORMATION
  Report Type: 
  Country: None (occurrence: None)
  Receive Date: 20090203
  Receipt Date: 20090123
  Transmission Date: 20090719
  Serious: Yes (Hospitalization)
  Sender: FDA-Public Use
  Company Number: 230941K09USA

PATIENT
  Age: 50 Year
  Sex: Male
  Weight: 68 kg

DRUGS (5)
  1. REBIF [Suspect]
     Indication: MULTIPLE SCLEROSIS
     Dosage: 44 MCG, 3 IN 1 WEEKS, SUBCUTANEOUS
     Route: 058
     Dates: start: 20080828
  2. VITAMIN B12 [Concomitant]
  3. ASCORBIC ACID [Concomitant]
  4. MULTIVITAMIN [Concomitant]
  5. FISH OIL (FISH OIL) [Concomitant]

REACTIONS (3)
  - BLOOD URINE PRESENT [None]
  - PNEUMONIA [None]
  - URINARY TRACT INFECTION [None]
